FAERS Safety Report 5889279-7 (Version None)
Quarter: 2008Q3

REPORT INFORMATION
  Report Type: 
  Country: None (occurrence: None)
  Receive Date: 20080917
  Receipt Date: 20080417
  Transmission Date: 20090109
  Serious: No
  Sender: FDA-Public Use
  Company Number: 2008-0007

PATIENT
  Age: 2 Year
  Sex: Male
  Weight: 14.5151 kg

DRUGS (1)
  1. BROTAPP DM COUGH AND COLD [Suspect]
     Dosage: 3 TEASPOON - ORAL
     Route: 048
     Dates: start: 20080417

REACTIONS (1)
  - ACCIDENTAL OVERDOSE [None]
